FAERS Safety Report 4303019-4 (Version None)
Quarter: 2004Q1

REPORT INFORMATION
  Report Type: 
  Country: None (occurrence: None)
  Receive Date: 20040223
  Receipt Date: 20040223
  Transmission Date: 20041129
  Serious: Yes (Life-Threatening, Other)
  Sender: FDA-Public Use
  Company Number: None

PATIENT
  Age: 53 Year
  Sex: Male
  Weight: 115.6672 kg

DRUGS (1)
  1. PROZAC [Suspect]
     Indication: POST-TRAUMATIC STRESS DISORDER
     Dosage: 80 MG DAILY PO
     Route: 048
     Dates: start: 19961201, end: 20001031

REACTIONS (13)
  - AGGRESSION [None]
  - AGITATION [None]
  - CARDIAC FLUTTER [None]
  - ENERGY INCREASED [None]
  - FEELING JITTERY [None]
  - MANIA [None]
  - MARITAL PROBLEM [None]
  - MOOD SWINGS [None]
  - MUSCLE TWITCHING [None]
  - PARANOIA [None]
  - PSYCHOTIC DISORDER [None]
  - TREMOR [None]
  - WEIGHT INCREASED [None]
